FAERS Safety Report 16278533 (Version 2)
Quarter: 2019Q3

REPORT INFORMATION
  Report Type: Spontaneous
  Country: GR (occurrence: GR)
  Receive Date: 20190506
  Receipt Date: 20190925
  Transmission Date: 20191004
  Serious: Yes (Other)
  Sender: FDA-Public Use
  Company Number: GR-MYLANLABS-2019M1042699

PATIENT
  Age: 69 Year
  Sex: Female

DRUGS (4)
  1. IBANDRONIC ACID MYLAN [Suspect]
     Active Substance: IBANDRONIC ACID
     Dosage: UNK
     Dates: start: 2014
  2. ZOLEDRONIC ACID MYLAN [Suspect]
     Active Substance: ZOLEDRONIC ACID
     Indication: OSTEOPOROSIS
     Dosage: UNK
     Dates: start: 2011, end: 2014
  3. ZOLEDRONIC ACID MYLAN [Suspect]
     Active Substance: ZOLEDRONIC ACID
     Dosage: UNK
     Dates: start: 2014
  4. IBANDRONIC ACID MYLAN [Suspect]
     Active Substance: IBANDRONIC ACID
     Indication: OSTEOPOROSIS
     Dosage: UNK
     Dates: start: 2011, end: 2014

REACTIONS (3)
  - Atypical femur fracture [Unknown]
  - Atypical fracture [Unknown]
  - Bone pain [Unknown]
